FAERS Safety Report 9759505 (Version 5)
Quarter: 2014Q1

REPORT INFORMATION
  Report Type: Report from Study
  Country: JP (occurrence: JP)
  Receive Date: 20131216
  Receipt Date: 20140304
  Transmission Date: 20141002
  Serious: Yes (Hospitalization)
  Sender: FDA-Public Use
  Company Number: JP-009507513-1312JPN004297

PATIENT
  Age: 85 Year
  Sex: Male
  Weight: 43 kg

DRUGS (17)
  1. CANCIDAS FOR INTRAVENOUS DRIP INFUSION 50MG [Suspect]
     Indication: SYSTEMIC CANDIDA
     Dosage: 50 MG, QD
     Route: 041
     Dates: start: 20131121, end: 20131128
  2. CANCIDAS FOR INTRAVENOUS DRIP INFUSION 70MG [Suspect]
     Indication: SYSTEMIC CANDIDA
     Dosage: 70 MG, QD
     Route: 041
     Dates: start: 20131120, end: 20131120
  3. LYRICA [Suspect]
     Indication: POST HERPETIC NEURALGIA
     Dosage: 25 MG, TID
     Route: 048
     Dates: start: 2013, end: 20131127
  4. LYRICA [Suspect]
     Dosage: 25 MG, QD
     Route: 048
     Dates: start: 20131128, end: 20131204
  5. ZOSYN [Suspect]
     Indication: PNEUMONIA BACTERIAL
     Dosage: 2.5 G, TID
     Route: 051
     Dates: start: 20131122, end: 20131130
  6. DIGOSIN [Concomitant]
     Indication: ATRIAL FIBRILLATION
     Dosage: 125 MICROGRAM, QD
     Route: 051
     Dates: start: 20131118, end: 20131129
  7. VASOLAN [Concomitant]
     Indication: ATRIAL FIBRILLATION
     Dosage: 2.5 MG, QD
     Route: 051
     Dates: start: 20131118, end: 20131205
  8. HEPARIN SODIUM [Concomitant]
     Indication: ATRIAL FIBRILLATION
     Dosage: 1 THOUSAND-MILLION UNIT, QD
     Route: 051
     Dates: start: 20131118, end: 20131124
  9. DEPAKENE [Concomitant]
     Indication: DEMYELINATION
     Dosage: 300 MG, TID
     Route: 048
     Dates: start: 20131024
  10. PREDONINE [Concomitant]
     Indication: DEMYELINATION
     Dosage: 17.5 MG, BID
     Route: 048
     Dates: start: 20131017, end: 20131204
  11. SULBACILLIN [Concomitant]
     Indication: PNEUMONIA BACTERIAL
     Dosage: 1 G, BID
     Route: 051
     Dates: start: 20131118, end: 20131121
  12. TAKEPRON [Concomitant]
     Indication: PROPHYLAXIS
     Dosage: 15 MG, QD
     Route: 048
     Dates: start: 20131003
  13. MIYA BM [Concomitant]
     Indication: PROPHYLAXIS
     Dosage: 1 G, TID
     Route: 048
     Dates: start: 20131003
  14. AMLODIN (AMLODIPINE BESYLATE) [Concomitant]
     Indication: HYPERTENSION
     Dosage: 5 MG, QD
     Route: 048
     Dates: start: 20131003
  15. AMBROXOL HYDROCHLORIDE [Concomitant]
     Indication: PROPHYLAXIS
     Dosage: 15 MG, TID
     Route: 048
     Dates: start: 20131003
  16. FENTORA [Concomitant]
     Indication: CANCER PAIN
     Dosage: FORMULATION TAP 1 MG QD
     Route: 062
     Dates: start: 2013, end: 20131126
  17. BAKTAR [Concomitant]
     Indication: INTERSTITIAL LUNG DISEASE
     Dosage: 0.5 DF, QD
     Route: 048
     Dates: start: 20131010, end: 20131129

REACTIONS (3)
  - Hypernatraemia [Recovered/Resolved]
  - Renal impairment [Recovered/Resolved]
  - Hepatic function abnormal [Recovered/Resolved]
